FAERS Safety Report 5520166-X (Version None)
Quarter: 2007Q4

REPORT INFORMATION
  Report Type: 
  Country: None (occurrence: None)
  Receive Date: 20071116
  Receipt Date: 20071101
  Transmission Date: 20080405
  Serious: No
  Sender: FDA-Public Use
  Company Number: US-BOEHRINGER INGELHEIM PHARMACEUTICALS, INC.-2007-BP-23806BP

PATIENT

DRUGS (2)
  1. VIRAMUNE [Suspect]
     Indication: HIV INFECTION
     Route: 048
     Dates: start: 20070101
  2. TRUVADA [Concomitant]
     Indication: HIV INFECTION

REACTIONS (4)
  - ANXIETY [None]
  - HEART RATE INCREASED [None]
  - HOT FLUSH [None]
  - PARAESTHESIA [None]
